FAERS Safety Report 6129472-1 (Version None)
Quarter: 2009Q1

REPORT INFORMATION
  Report Type: 
  Country: None (occurrence: None)
  Receive Date: 20090324
  Receipt Date: 20090311
  Transmission Date: 20090719
  Serious: Yes (Other)
  Sender: FDA-Public Use
  Company Number: GB-AMGEN-US333966

PATIENT
  Sex: Female
  Weight: 96 kg

DRUGS (4)
  1. ENBREL [Suspect]
     Indication: RHEUMATOID ARTHRITIS
     Dosage: 50MG FREQUENCY UNKNOWN
     Route: 058
  2. METHOTREXATE [Concomitant]
     Indication: RHEUMATOID ARTHRITIS
     Route: 048
  3. ACETAMINOPHEN W/ CODEINE [Concomitant]
     Dosage: 2 TABLETS QDS OR AS REQUIRED
     Route: 048
  4. FOLIC ACID [Concomitant]
     Indication: RHEUMATOID ARTHRITIS
     Dosage: 5 MG (FREQUENCY UNKNOWN)
     Route: 048

REACTIONS (6)
  - DEPRESSION [None]
  - INFECTION [None]
  - MOOD SWINGS [None]
  - NAUSEA [None]
  - PHYSICAL ASSAULT [None]
  - TONSILLITIS [None]
